FAERS Safety Report 7063748-9 (Version None)
Quarter: 2010Q4

REPORT INFORMATION
  Report Type: 
  Country: None (occurrence: None)
  Receive Date: 20101026
  Receipt Date: 20100825
  Transmission Date: 20110411
  Serious: No
  Sender: FDA-Public Use
  Company Number: US-ABBOTT-10P-163-0666344-00

PATIENT
  Sex: Female
  Weight: 77.18 kg

DRUGS (2)
  1. LUPRON DEPOT [Suspect]
     Indication: ENDOMETRIOSIS
     Dosage: 3 MONTH DOSE
     Route: 050
     Dates: start: 20100629
  2. DARVOCET [Concomitant]
     Indication: PAIN

REACTIONS (10)
  - ARTHRALGIA [None]
  - DEPRESSION [None]
  - ENDOMETRIOSIS [None]
  - HEADACHE [None]
  - HOT FLUSH [None]
  - INSOMNIA [None]
  - LIBIDO DECREASED [None]
  - MOOD SWINGS [None]
  - MUSCULOSKELETAL PAIN [None]
  - POOR QUALITY SLEEP [None]
